FAERS Safety Report 14804395 (Version 1)
Quarter: 2018Q2

REPORT INFORMATION
  Report Type: Spontaneous
  Country: RO (occurrence: RO)
  Receive Date: 20180425
  Receipt Date: 20180425
  Transmission Date: 20180711
  Serious: Yes (Other)
  Sender: FDA-Public Use
  Company Number: PHHY2018RO036703

PATIENT
  Age: 74 Year
  Sex: Male
  Weight: 95 kg

DRUGS (1)
  1. AFINITOR [Suspect]
     Active Substance: EVEROLIMUS
     Indication: RENAL CELL CARCINOMA
     Dosage: 10 MG, QD
     Route: 048
     Dates: start: 20170701, end: 20180219

REACTIONS (7)
  - Anaphylactoid reaction [Unknown]
  - Rash [Not Recovered/Not Resolved]
  - Renal failure [Not Recovered/Not Resolved]
  - Anaemia [Not Recovered/Not Resolved]
  - Fixed eruption [Unknown]
  - Blood creatinine abnormal [Unknown]
  - Type I hypersensitivity [Unknown]
